FAERS Safety Report 5471289-5 (Version None)
Quarter: 2007Q3

REPORT INFORMATION
  Report Type: 
  Country: None (occurrence: None)
  Receive Date: 20070928
  Receipt Date: 20070918
  Transmission Date: 20080115
  Serious: Yes (Hospitalization)
  Sender: FDA-Public Use
  Company Number: HQWYE882027APR07

PATIENT
  Sex: Female

DRUGS (8)
  1. HYPEN [Suspect]
     Indication: RHEUMATOID ARTHRITIS
     Route: 048
     Dates: start: 20070421, end: 20070421
  2. PREDNISOLONE [Concomitant]
     Dosage: UNSPECIFIED
     Dates: start: 20050101
  3. ALPRAZOLAM [Concomitant]
     Dosage: UNSPECIFIED
     Dates: start: 20070404
  4. RABEPRAZOLE SODIUM [Concomitant]
     Dosage: UNSPECIFIED
     Dates: start: 20070404
  5. ALFACALCIDOL [Concomitant]
     Dosage: UNSPECIFIED
     Dates: start: 20050101
  6. ETHYL LOFLAZEPATE [Concomitant]
     Dosage: UNSPECIFIED
     Dates: start: 20070404
  7. METHOTREXATE [Concomitant]
     Dosage: UNSPECIFIED
     Dates: start: 20050101
  8. FOLIC ACID [Concomitant]
     Dosage: UNSPECIFIED
     Dates: start: 20050101

REACTIONS (3)
  - ANAPHYLACTIC SHOCK [None]
  - DIARRHOEA [None]
  - VOMITING [None]
